FAERS Safety Report 10263402 (Version 2)
Quarter: 2015Q2

REPORT INFORMATION
  Report Type: Spontaneous
  Country: US (occurrence: US)
  Receive Date: 20140626
  Receipt Date: 20150428
  Transmission Date: 20150821
  Serious: Yes (Hospitalization, Congenital Anomaly, Other)
  Sender: FDA-Public Use
  Company Number: US-ELI_LILLY_AND_COMPANY-US201406008399

PATIENT
  Age: 7 Month

DRUGS (1)
  1. PROZAC [Suspect]
     Active Substance: FLUOXETINE HYDROCHLORIDE
     Indication: PRODUCT USED FOR UNKNOWN INDICATION
     Route: 064

REACTIONS (10)
  - Hepatic function abnormal [Unknown]
  - Fallot^s tetralogy [Unknown]
  - Hypoglycaemia [Unknown]
  - Renal failure [Recovered/Resolved]
  - Pneumothorax [Recovered/Resolved]
  - Cardiac murmur [Unknown]
  - Pulmonary haemorrhage [Unknown]
  - Coagulopathy [Unknown]
  - Foetal exposure during pregnancy [Recovered/Resolved]
  - Low cardiac output syndrome [Unknown]

NARRATIVE: CASE EVENT DATE: 200611
